FAERS Safety Report 22893750 (Version 3)
Quarter: 2024Q4

REPORT INFORMATION
  Report Type: Spontaneous
  Country: AT (occurrence: AT)
  Receive Date: 20230901
  Receipt Date: 20241107
  Transmission Date: 20250115
  Serious: Yes (Death, Life-Threatening, Other)
  Sender: MYLAN
  Company Number: AT-PFIZER INC-PV202300134759

PATIENT
  Age: 47 Year
  Sex: Female
  Weight: 55 kg

DRUGS (8)
  1. AMIODARONE [Suspect]
     Active Substance: AMIODARONE
     Indication: Product used for unknown indication
     Dosage: UNK
     Route: 065
  2. LEVOFLOXACIN [Suspect]
     Active Substance: LEVOFLOXACIN
     Indication: Product used for unknown indication
     Dosage: UNK
     Route: 065
  3. LEVOSIMENDAN [Suspect]
     Active Substance: LEVOSIMENDAN
     Indication: Infection
     Dosage: UNK
     Route: 065
  4. RIVAROXABAN [Suspect]
     Active Substance: RIVAROXABAN
     Indication: Pulmonary embolism
     Dosage: UNK
     Route: 065
  5. MEROPENEM [Suspect]
     Active Substance: MEROPENEM
     Indication: Infection
     Dosage: UNK
     Route: 065
  6. FLUCONAZOLE [Suspect]
     Active Substance: FLUCONAZOLE
     Indication: Infection
     Dosage: UNK
     Route: 065
  7. PRADAXA [Suspect]
     Active Substance: DABIGATRAN ETEXILATE MESYLATE
     Indication: Infection
     Dosage: 300 MILLIGRAM, QD (150 MG, 2X/DAY) (START DATE: JAN-2013)
     Route: 065
  8. PRADAXA [Suspect]
     Active Substance: DABIGATRAN ETEXILATE MESYLATE
     Indication: Thrombosis prophylaxis

REACTIONS (15)
  - Sepsis [Fatal]
  - Purulent pericarditis [Fatal]
  - Pneumonia [Fatal]
  - Respiratory failure [Fatal]
  - Uterine leiomyoma [Unknown]
  - Left ventricular dysfunction [Unknown]
  - Pelvic venous thrombosis [Unknown]
  - Stress cardiomyopathy [Unknown]
  - Ventricular fibrillation [Recovered/Resolved]
  - Candida infection [Unknown]
  - Sinus tachycardia [Unknown]
  - Cardiac arrest [Recovered/Resolved]
  - Bundle branch block left [Unknown]
  - Torsade de pointes [Recovered/Resolved]
  - Electrocardiogram QT prolonged [Unknown]

NARRATIVE: CASE EVENT DATE: 20120301
